FAERS Safety Report 6191561-3 (Version None)
Quarter: 2009Q2

REPORT INFORMATION
  Report Type: 
  Country: None (occurrence: None)
  Receive Date: 20090515
  Receipt Date: 20071015
  Transmission Date: 20091009
  Serious: Yes (Hospitalization, Other)
  Sender: FDA-Public Use
  Company Number: US-ASTRAZENECA-2006UW22580

PATIENT
  Age: 19719 Day
  Sex: Female
  Weight: 97.5 kg

DRUGS (23)
  1. SEROQUEL [Suspect]
     Indication: DEPRESSION
     Route: 048
     Dates: start: 20030101
  2. SEROQUEL [Suspect]
     Dosage: 100 TO 200 MG
     Route: 048
     Dates: start: 20030228
  3. EFFEXOR [Concomitant]
     Indication: DEPRESSION
     Dosage: 75 TO 150 MG
     Route: 048
  4. TOPROL-XL [Concomitant]
     Indication: HYPERTENSION
     Dosage: 50 TO 100 MG
     Route: 048
  5. HYZAAR [Concomitant]
     Indication: HYPERTENSION
     Dosage: 125 TO 100 MG
     Route: 048
  6. ZETIA [Concomitant]
     Indication: HYPERLIPIDAEMIA
     Route: 048
  7. THEOPHYLLINE [Concomitant]
     Dosage: 20 TO 450 MG
     Route: 048
  8. LASIX [Concomitant]
     Indication: OEDEMA PERIPHERAL
     Dosage: 20 TO 80 MG
     Route: 048
  9. NEXIUM [Concomitant]
     Route: 048
  10. ASPIRIN [Concomitant]
     Route: 048
  11. REQUIP [Concomitant]
     Dosage: 1 TO 2 MG
     Route: 048
  12. TEGRETOL [Concomitant]
     Dosage: 100 TO 200 MG
     Route: 048
  13. LUNESTA [Concomitant]
     Dosage: 2 TO 3 MG
     Route: 048
  14. FLONASE [Concomitant]
     Route: 045
  15. GLUCOPHAGE [Concomitant]
     Dosage: 2000 TO 3000 MG
     Route: 048
  16. CRESTOR [Concomitant]
     Indication: HYPERLIPIDAEMIA
     Dosage: 20 TO 40 MG
     Route: 048
  17. LOPID [Concomitant]
     Indication: HYPERCHOLESTEROLAEMIA
     Route: 065
  18. ATROVENT [Concomitant]
     Route: 065
  19. ALBUTEROL [Concomitant]
     Route: 055
  20. NEURONTIN [Concomitant]
     Route: 065
  21. XANAX [Concomitant]
     Route: 065
  22. CORGARD [Concomitant]
     Route: 065
  23. K-DUR [Concomitant]
     Route: 065

REACTIONS (11)
  - CELLULITIS [None]
  - CHEST PAIN [None]
  - DIABETES MELLITUS [None]
  - DIABETIC NEUROPATHY [None]
  - DYSPHAGIA [None]
  - DYSPHONIA [None]
  - FRACTURE [None]
  - HYPOTHYROIDISM [None]
  - JOINT SPRAIN [None]
  - OEDEMA PERIPHERAL [None]
  - SLEEP APNOEA SYNDROME [None]
